FAERS Safety Report 5484635-3 (Version None)
Quarter: 2007Q4

REPORT INFORMATION
  Report Type: 
  Country: None (occurrence: None)
  Receive Date: 20071012
  Receipt Date: 20071002
  Transmission Date: 20080405
  Serious: Yes (Other)
  Sender: FDA-Public Use
  Company Number: FR-PFIZER INC-2007074499

PATIENT
  Age: 72 Year
  Sex: Male

DRUGS (2)
  1. SUTENT [Suspect]
     Indication: METASTASES TO LUNG
     Dosage: DAILY DOSE:50MG
  2. ALL OTHER THERAPEUTIC PRODUCTS [Concomitant]

REACTIONS (3)
  - OSTEONECROSIS [None]
  - PAIN [None]
  - TOOTH ABSCESS [None]
